FAERS Safety Report 8381140-1 (Version None)
Quarter: 2012Q2

REPORT INFORMATION
  Report Type: 
  Country: None (occurrence: None)
  Receive Date: 20120523
  Receipt Date: 20120518
  Transmission Date: 20120825
  Serious: Yes (Other)
  Sender: FDA-Public Use
  Company Number: PHEH2012US010431

PATIENT
  Sex: Female

DRUGS (2)
  1. DIOVAN [Suspect]
     Dosage: 160 MG,
  2. SYNTHROID [Suspect]
     Dosage: UNK UKN, UNK

REACTIONS (1)
  - LOSS OF CONSCIOUSNESS [None]
